FAERS Safety Report 9221200 (Version 1)
Quarter: 2013Q2

REPORT INFORMATION
  Report Type: Spontaneous
  Country: IT (occurrence: IT)
  Receive Date: 20130410
  Receipt Date: 20130410
  Transmission Date: 20140414
  Serious: Yes (Hospitalization)
  Sender: FDA-Public Use
  Company Number: IT-B.I. PHARMACEUTICALS,INC./RIDGEFIELD-2013-IT-00244IT

PATIENT
  Age: 42 Year
  Sex: Female

DRUGS (3)
  1. ZANTAC [Suspect]
     Indication: ABDOMINAL PAIN UPPER
     Dosage: STRENGTH: 50 MG/ 5ML; DAILY AND TOTAL DOSE: ONE POSOLOGIC UNIT
     Route: 042
     Dates: start: 20130403, end: 20130403
  2. BUSCOPAN [Suspect]
     Indication: ABDOMINAL PAIN UPPER
     Dosage: STRENGTH: 20 MG/ML; DAILY AND TOTAL DOSE: ONE POSOLOGIC UNIT
     Route: 042
     Dates: start: 20130403, end: 20130403
  3. NEBIVOLOLO [Concomitant]
     Indication: HYPERTENSION
     Route: 048

REACTIONS (2)
  - Cough [Recovered/Resolved]
  - Throat tightness [Recovered/Resolved]
